FAERS Safety Report 5627936-8 (Version None)
Quarter: 2008Q1

REPORT INFORMATION
  Report Type: 
  Country: None (occurrence: None)
  Receive Date: 20080215
  Receipt Date: 20080206
  Transmission Date: 20080703
  Serious: Yes (Other)
  Sender: FDA-Public Use
  Company Number: JP-ROCHE-546340

PATIENT
  Age: 9 Year
  Sex: Male

DRUGS (4)
  1. CELLCEPT [Suspect]
     Route: 065
  2. METHYLPREDNISOLONE [Concomitant]
  3. TACROLIMUS [Concomitant]
  4. BASILIXIMAB [Concomitant]

REACTIONS (2)
  - NEPHRITIS INTERSTITIAL [None]
  - VESICOURETERIC REFLUX [None]
